FAERS Safety Report 9373636 (Version 1)
Quarter: 2013Q2

REPORT INFORMATION
  Report Type: Spontaneous
  Country: CH (occurrence: CH)
  Receive Date: 20130627
  Receipt Date: 20130627
  Transmission Date: 20140414
  Serious: Yes (Hospitalization)
  Sender: FDA-Public Use
  Company Number: CH-GILEAD-2013-0077533

PATIENT
  Age: 51 Year
  Sex: Female

DRUGS (5)
  1. VIREAD [Suspect]
     Indication: CHRONIC HEPATITIS B
     Route: 048
     Dates: end: 20130412
  2. BARACLUDE [Suspect]
     Indication: CHRONIC HEPATITIS B
     Route: 048
     Dates: end: 20130412
  3. ENATEC [Concomitant]
     Dosage: 10 MG, QD
     Route: 048
  4. INDERAL [Concomitant]
     Dosage: 80 MG, QD
     Route: 048
  5. PARIET [Concomitant]
     Dosage: 20 MG, QD
     Route: 048

REACTIONS (3)
  - Lipase increased [Recovering/Resolving]
  - Amylase increased [Recovering/Resolving]
  - Pancreatitis [Recovered/Resolved]
